FAERS Safety Report 12217723 (Version 1)
Quarter: 2016Q1

REPORT INFORMATION
  Report Type: Spontaneous
  Country: DE (occurrence: DE)
  Receive Date: 20160329
  Receipt Date: 20160329
  Transmission Date: 20160526
  Serious: Yes (Hospitalization)
  Sender: FDA-Public Use
  Company Number: DE-DRREDDYS-USA/GER/16/0078361

PATIENT
  Age: 86 Year
  Sex: Female

DRUGS (1)
  1. ALENDRONIC ACID [Suspect]
     Active Substance: ALENDRONIC ACID
     Indication: OSTEOPENIA
     Route: 048

REACTIONS (8)
  - Bacterial disease carrier [Unknown]
  - Mouth ulceration [Recovered/Resolved]
  - Wrong technique in product usage process [Unknown]
  - Odynophagia [Unknown]
  - Lip ulceration [Recovered/Resolved]
  - Pharyngeal ulceration [Recovered/Resolved]
  - Dysphagia [Unknown]
  - Aggression [Unknown]
